FAERS Safety Report 12439709 (Version 2)
Quarter: 2016Q2

REPORT INFORMATION
  Report Type: Spontaneous
  Country: US (occurrence: US)
  Receive Date: 20160606
  Receipt Date: 20160610
  Transmission Date: 20160815
  Serious: Yes (Death, Hospitalization)
  Sender: FDA-Public Use
  Company Number: US-MDT-ADR-2016-01011

PATIENT
  Age: 70 Year
  Sex: Female

DRUGS (1)
  1. COMPOUNDED BACLOFEN [Suspect]
     Active Substance: BACLOFEN
     Dosage: 1000 MCG/DAY
     Route: 037

REACTIONS (6)
  - Dysphagia [Fatal]
  - Cardiac failure [Fatal]
  - Pneumonia aspiration [Fatal]
  - Sepsis [Fatal]
  - Respiratory failure [Fatal]
  - Infection [Fatal]

NARRATIVE: CASE EVENT DATE: 20150801
